FAERS Safety Report 4418412-9 (Version None)
Quarter: 2004Q3

REPORT INFORMATION
  Report Type: 
  Country: None (occurrence: None)
  Receive Date: 20040809
  Receipt Date: 20040419
  Transmission Date: 20050211
  Serious: No
  Sender: FDA-Public Use
  Company Number: US-GLAXOSMITHKLINE-A0507561A

PATIENT
  Age: 47 Year
  Sex: Male

DRUGS (9)
  1. PAXIL [Suspect]
     Indication: MAJOR DEPRESSION
     Dosage: 12.5MG PER DAY
     Route: 048
     Dates: start: 20040330, end: 20040407
  2. HYDROCODONE [Concomitant]
  3. SOMA [Concomitant]
  4. PLAVIX [Concomitant]
  5. ALTACE [Concomitant]
  6. IMDUR [Concomitant]
  7. TOPROL-XL [Concomitant]
  8. ASPIRIN [Concomitant]
  9. ZOCOR [Concomitant]

REACTIONS (1)
  - ANXIETY [None]
